FAERS Safety Report 17916651 (Version 1)
Quarter: 2020Q2

REPORT INFORMATION
  Report Type: Spontaneous
  Country: CN (occurrence: CN)
  Receive Date: 20200619
  Receipt Date: 20200619
  Transmission Date: 20200714
  Serious: Yes (Other)
  Sender: FDA-Public Use
  Company Number: CN-009507513-2006CHN005944

PATIENT
  Age: 70 Year
  Sex: Female
  Weight: 61.5 kg

DRUGS (3)
  1. KEYTRUDA [Suspect]
     Active Substance: PEMBROLIZUMAB
     Indication: LUNG ADENOCARCINOMA
     Dosage: 200MG IVGTT QD
     Route: 041
     Dates: start: 20200520, end: 20200520
  2. CISPLATIN. [Suspect]
     Active Substance: CISPLATIN
     Indication: LUNG ADENOCARCINOMA
  3. PEMETREXED DISODIUM [Suspect]
     Active Substance: PEMETREXED DISODIUM
     Indication: LUNG ADENOCARCINOMA

REACTIONS (10)
  - Tachypnoea [Unknown]
  - Immune-mediated pneumonitis [Unknown]
  - Chest discomfort [Unknown]
  - Epigastric discomfort [Unknown]
  - Cough [Unknown]
  - Dyspnoea [Unknown]
  - Productive cough [Unknown]
  - Vomiting [Unknown]
  - Pneumonia [Unknown]
  - Respiratory failure [Unknown]

NARRATIVE: CASE EVENT DATE: 20200523
